FAERS Safety Report 11281107 (Version 2)
Quarter: 2015Q3

REPORT INFORMATION
  Report Type: Report from Study
  Country: DE (occurrence: DE)
  Receive Date: 20150717
  Receipt Date: 20150730
  Transmission Date: 20151125
  Serious: Yes (Hospitalization)
  Sender: FDA-Public Use
  Company Number: DE-BRISTOL-MYERS SQUIBB COMPANY-BMS-2015-046745

PATIENT
  Age: 51 Year
  Sex: Male
  Weight: 57 kg

DRUGS (12)
  1. FENISTIL [Concomitant]
     Active Substance: DIMETHINDENE
     Dosage: UNK, QWK
     Route: 065
     Dates: start: 20150511, end: 20150518
  2. OXALIPLATIN. [Concomitant]
     Active Substance: OXALIPLATIN
     Indication: COLORECTAL CANCER METASTATIC
     Dosage: 50 MG/M2, QWK
     Route: 042
     Dates: start: 20150126
  3. FENISTIL [Concomitant]
     Active Substance: DIMETHINDENE
     Indication: PRODUCT USED FOR UNKNOWN INDICATION
     Dosage: UNK, QWK
     Route: 065
     Dates: start: 20150216, end: 20150223
  4. FLUOROURACIL. [Concomitant]
     Active Substance: FLUOROURACIL
     Indication: COLORECTAL CANCER METASTATIC
     Dosage: UNK
     Route: 065
     Dates: start: 20150126
  5. DEXAMETHASONE. [Concomitant]
     Active Substance: DEXAMETHASONE
     Indication: PRODUCT USED FOR UNKNOWN INDICATION
     Dosage: 8 MG, QWK
     Route: 042
     Dates: start: 20150420, end: 20150427
  6. CETUXIMAB [Suspect]
     Active Substance: CETUXIMAB
     Indication: COLORECTAL CANCER METASTATIC
     Dosage: 400 MG/M2, UNK
     Route: 042
     Dates: start: 20150216
  7. FOLINIC ACID [Concomitant]
     Active Substance: LEUCOVORIN
     Indication: COLORECTAL CANCER METASTATIC
     Dosage: 500 MG/M2, UNK
     Route: 042
     Dates: start: 20150126
  8. CETUXIMAB [Suspect]
     Active Substance: CETUXIMAB
     Dosage: 250 MG/M2, UNK
     Route: 042
     Dates: start: 20150511
  9. FENISTIL [Concomitant]
     Active Substance: DIMETHINDENE
     Dosage: UNK, QWK
     Route: 065
     Dates: start: 20150601
  10. DEXAMETHASONE. [Concomitant]
     Active Substance: DEXAMETHASONE
     Dosage: 8 MG, QWK
     Route: 042
     Dates: start: 20150511
  11. ONDANSETRON [Concomitant]
     Active Substance: ONDANSETRON
     Indication: PRODUCT USED FOR UNKNOWN INDICATION
     Route: 042
  12. FENISTIL [Concomitant]
     Active Substance: DIMETHINDENE
     Dosage: UNK, QWK
     Route: 065
     Dates: start: 20150323, end: 20150330

REACTIONS (1)
  - Anal abscess [Recovered/Resolved]

NARRATIVE: CASE EVENT DATE: 20150516
